FAERS Safety Report 21182677 (Version 1)
Quarter: 2022Q3

REPORT INFORMATION
  Report Type: Spontaneous
  Country: IN (occurrence: IN)
  Receive Date: 20220808
  Receipt Date: 20220808
  Transmission Date: 20221026
  Serious: Yes (Other)
  Sender: FDA-Public Use
  Company Number: IN-CADILA HEALTHCARE LIMITED-IN-ZYDUS-080982

PATIENT

DRUGS (4)
  1. METHOTREXATE [Suspect]
     Active Substance: METHOTREXATE
     Indication: Morphoea
     Dosage: 15 MILLIGRAM, WEEKLY
     Route: 048
  2. CLOBETASOL [Suspect]
     Active Substance: CLOBETASOL
     Indication: Morphoea
     Dosage: 0.05 PERCENT, QD
     Route: 065
  3. TACROLIMUS [Suspect]
     Active Substance: TACROLIMUS
     Indication: Morphoea
     Dosage: 0.1 PERCENT, QD
     Route: 061
  4. TRIAMCINOLONE [Suspect]
     Active Substance: TRIAMCINOLONE
     Indication: Morphoea
     Dosage: 10 MILLIGRAM
     Route: 030

REACTIONS (4)
  - Skin atrophy [Recovered/Resolved]
  - Skin hypopigmentation [Recovered/Resolved]
  - Drug ineffective [Unknown]
  - Rebound effect [Unknown]
